FAERS Safety Report 7106187-4 (Version None)
Quarter: 2010Q4

REPORT INFORMATION
  Report Type: 
  Country: None (occurrence: None)
  Receive Date: 20101116
  Receipt Date: 20100813
  Transmission Date: 20110411
  Serious: Yes (Other)
  Sender: FDA-Public Use
  Company Number: US-BAYER-201030286NA

PATIENT
  Age: 62 Year
  Sex: Male
  Weight: 123 kg

DRUGS (18)
  1. MAGNEVIST [Suspect]
     Indication: NUCLEAR MAGNETIC RESONANCE IMAGING BRAIN
     Dosage: AS USED: 10 ML
     Dates: start: 20060117, end: 20060117
  2. OMNISCAN [Suspect]
     Indication: NUCLEAR MAGNETIC RESONANCE IMAGING
     Dosage: AS USED: 55 ML
     Dates: start: 20041109, end: 20041109
  3. UNKNOWN GBCA [Suspect]
     Indication: CATHETERISATION CARDIAC
     Dates: start: 20021104, end: 20021104
  4. UNKNOWN GBCA [Suspect]
     Dates: start: 20040101, end: 20040101
  5. GABAPENTIN [Concomitant]
     Dosage: TOTAL DAILY DOSE: 1200 MG
  6. FUROSEMIDE [Concomitant]
     Dosage: TOTAL DAILY DOSE: 40 MG
  7. FOLIC ACID [Concomitant]
     Dosage: TOTAL DAILY DOSE: 1 MG
  8. DOXAZOSIN MESYLATE [Concomitant]
     Dosage: TOTAL DAILY DOSE: 8 MG
  9. SIMVASTATIN [Concomitant]
     Dosage: TOTAL DAILY DOSE: 40 MG
  10. ATENOLOL [Concomitant]
     Dosage: TOTAL DAILY DOSE: 100 MG
  11. HYDRALAZINE [Concomitant]
     Dosage: TOTAL DAILY DOSE: 60 MG
  12. DARVOCET [Concomitant]
     Dosage: 1-2 TABLETS PRN
  13. LYRICA [Concomitant]
     Dosage: 25 MG, 1-2 TABLETS DAILY
  14. ARANESP [Concomitant]
     Route: 042
     Dates: start: 20070521
  15. MAGNESIUM [Concomitant]
  16. CALCIUM [Concomitant]
  17. RENAGEL [Concomitant]
     Dosage: 1 DAILY
  18. EPOGEN [Concomitant]
     Dosage: 1000/ 3 X WEEK DURING DIALYSIS
     Route: 042

REACTIONS (18)
  - BURNING SENSATION [None]
  - DRY SKIN [None]
  - ERYTHEMA [None]
  - EXFOLIATIVE RASH [None]
  - HYPERKERATOSIS [None]
  - HYPOAESTHESIA [None]
  - NEPHROGENIC SYSTEMIC FIBROSIS [None]
  - OEDEMA PERIPHERAL [None]
  - PAIN IN EXTREMITY [None]
  - RASH [None]
  - RASH PRURITIC [None]
  - SKIN ATROPHY [None]
  - SKIN DISORDER [None]
  - SKIN FIBROSIS [None]
  - SKIN HYPERTROPHY [None]
  - SKIN INDURATION [None]
  - SKIN LESION [None]
  - SKIN PLAQUE [None]
